FAERS Safety Report 7457579-5 (Version None)
Quarter: 2011Q2

REPORT INFORMATION
  Report Type: 
  Country: None (occurrence: None)
  Receive Date: 20110504
  Receipt Date: 20110421
  Transmission Date: 20111010
  Serious: No
  Sender: FDA-Public Use
  Company Number: US-B.I. PHARMACEUTICALS,INC./RIDGEFIELD-2011-BP-05807BP

PATIENT
  Sex: Female

DRUGS (12)
  1. PRADAXA [Suspect]
     Indication: ANTICOAGULANT THERAPY
  2. NEXIUM [Concomitant]
     Indication: DIVERTICULITIS
  3. METOPROLOL TARTRATE [Concomitant]
  4. ACIDOPHILUS [Concomitant]
     Indication: DIVERTICULITIS
  5. ISOSORBIDE MN ER [Concomitant]
  6. MAGNESIUM OXIDE [Concomitant]
     Dosage: 400 MG
  7. NEXIUM [Concomitant]
     Indication: GASTROOESOPHAGEAL REFLUX DISEASE
     Dosage: 40 MG
  8. ACIDOPHILUS [Concomitant]
     Indication: GASTROOESOPHAGEAL REFLUX DISEASE
  9. DIGOXIN [Concomitant]
     Dosage: 0.125 MG
  10. KLOR-CON [Concomitant]
  11. PRADAXA [Suspect]
     Indication: ATRIAL FIBRILLATION
     Dosage: 150 MG
     Route: 048
     Dates: start: 20110114, end: 20110225
  12. SPIRONOLACTONE/HYDROCHLOROTHIAZIDE [Concomitant]

REACTIONS (2)
  - DYSPEPSIA [None]
  - FLATULENCE [None]
